FAERS Safety Report 25707282 (Version 1)
Quarter: 2025Q3

REPORT INFORMATION
  Report Type: Report from Study
  Country: US (occurrence: US)
  Receive Date: 20250820
  Receipt Date: 20250820
  Transmission Date: 20251020
  Serious: No
  Sender: SUNOVION
  Company Number: US-SUMITOMO PHARMA SWITZERLAND GMBH-2025SPA009167

PATIENT
  Age: 63 Year
  Sex: Male

DRUGS (19)
  1. ORGOVYX [Suspect]
     Active Substance: RELUGOLIX
     Indication: Prostate cancer
     Route: 048
  2. ORGOVYX [Suspect]
     Active Substance: RELUGOLIX
     Route: 048
  3. ASPIRIN [Concomitant]
     Active Substance: ASPIRIN
  4. ATORVASTATIN CALCIUM [Concomitant]
     Active Substance: ATORVASTATIN CALCIUM
  5. AZELASTINE HYDROCHLORIDE [Concomitant]
     Active Substance: AZELASTINE HYDROCHLORIDE
     Route: 047
  6. BICALUTAMIDE [Concomitant]
     Active Substance: BICALUTAMIDE
  7. CARVEDILOL [Concomitant]
     Active Substance: CARVEDILOL
  8. CEFTRIAXONE [Concomitant]
     Active Substance: CEFTRIAXONE
  9. ENTRESTO [Concomitant]
     Active Substance: SACUBITRIL\VALSARTAN
  10. LASIX [Concomitant]
     Active Substance: FUROSEMIDE
  11. GENTAMICIN SULFATE [Concomitant]
     Active Substance: GENTAMICIN SULFATE
  12. NORCO [Concomitant]
     Active Substance: ACETAMINOPHEN\HYDROCODONE BITARTRATE
  13. HYDROCORTISONE ACETATE [Concomitant]
     Active Substance: HYDROCORTISONE ACETATE
  14. JARDIANCE [Concomitant]
     Active Substance: EMPAGLIFLOZIN
  15. LEVOTHYROXINE SODIUM [Concomitant]
     Active Substance: LEVOTHYROXINE SODIUM
  16. POTASSIUM CHLORIDE [Concomitant]
     Active Substance: POTASSIUM CHLORIDE
     Route: 048
  17. PREDNISONE [Concomitant]
     Active Substance: PREDNISONE
  18. SULFAMETHOXAZOLE AND TRIMETHOPRIM [Concomitant]
     Active Substance: SULFAMETHOXAZOLE\TRIMETHOPRIM
  19. TADALAFIL [Concomitant]
     Active Substance: TADALAFIL

REACTIONS (4)
  - Pain [Unknown]
  - Nausea [Unknown]
  - Fatigue [Unknown]
  - Hot flush [Unknown]
